FAERS Safety Report 15516321 (Version 1)
Quarter: 2018Q4

REPORT INFORMATION
  Report Type: Spontaneous
  Country: PT (occurrence: PT)
  Receive Date: 20181017
  Receipt Date: 20181017
  Transmission Date: 20190205
  Serious: Yes (Other)
  Sender: FDA-Public Use
  Company Number: PT-ACCORD-073579

PATIENT
  Age: 61 Year
  Sex: Female
  Weight: 61 kg

DRUGS (7)
  1. OXALIPLATIN ACCORD [Suspect]
     Active Substance: OXALIPLATIN
     Indication: COLORECTAL CANCER
     Dosage: 21-DAY CYCLES, 2ND CYCLE ON 12/5/2017 AND 3RD CYCLE ON 12/28/2017
     Route: 042
     Dates: start: 20171114
  2. LORAZEPAM. [Concomitant]
     Active Substance: LORAZEPAM
     Dosage: 21-DAY CYCLES
     Route: 048
     Dates: start: 20171114
  3. DEXAMETHASONE. [Concomitant]
     Active Substance: DEXAMETHASONE
     Dosage: 21-DAY CYCLES
     Route: 042
     Dates: start: 20171114
  4. METOCLOPRAMIDE. [Concomitant]
     Active Substance: METOCLOPRAMIDE
     Dosage: 10 MG 3X DAY FOR 1 TO 5 DAYS
     Route: 048
     Dates: start: 20171114
  5. ONDANSETRON [Concomitant]
     Active Substance: ONDANSETRON
     Dosage: 8 MG 2X SOS FOR 1 TO 5 DAYS
     Route: 048
     Dates: start: 20171114
  6. CAPECITABINE. [Concomitant]
     Active Substance: CAPECITABINE
     Dosage: 1500 MG TWICE DAILY FOR 14 DAYS OF THE CYCLE
     Route: 048
     Dates: start: 20171114
  7. LOPERAMIDE [Concomitant]
     Active Substance: LOPERAMIDE
     Dosage: 2 COMP. 3XDAY SOS
     Route: 048
     Dates: start: 20171114

REACTIONS (2)
  - Dyspnoea [Recovered/Resolved]
  - Dysphonia [Recovered/Resolved]

NARRATIVE: CASE EVENT DATE: 20171228
